FAERS Safety Report 4977768-9 (Version None)
Quarter: 2006Q1

REPORT INFORMATION
  Report Type: 
  Country: None (occurrence: None)
  Receive Date: 20060215
  Receipt Date: 20050714
  Transmission Date: 20060701
  Serious: Yes (Death)
  Sender: FDA-Public Use
  Company Number: MC200500577

PATIENT
  Age: 82 Year
  Sex: Female

DRUGS (4)
  1. ANGIOMAX [Suspect]
     Indication: PERCUTANEOUS CORONARY INTERVENTION
     Dosage: 0.75 MG/KG, BOLUS, IV BOLUS
     Route: 040
  2. ANGIOMAX [Suspect]
     Dosage: 1.75 MG/KG/HR, INTRAVENOUS
     Route: 042
  3. ASPIRIN [Concomitant]
  4. PLAVIX [Concomitant]

REACTIONS (1)
  - THROMBOSIS [None]
